FAERS Safety Report 19654448 (Version 1)
Quarter: 2021Q3

REPORT INFORMATION
  Report Type: Spontaneous
  Country: US (occurrence: US)
  Receive Date: 20210804
  Receipt Date: 20210804
  Transmission Date: 20211014
  Serious: No
  Sender: FDA-Public Use
  Company Number: US-DRREDDYS-SPO/USA/21/0138377

PATIENT
  Age: 57 Year
  Sex: Female
  Weight: 46.72 kg

DRUGS (2)
  1. NEURONTIN [Suspect]
     Active Substance: GABAPENTIN
     Indication: EPILEPSY
     Dosage: 5.5 ML 7 AM, 5.5 ML 3 PM AND 10 ML AND 11 PM. EXACTLY 3 HOURS APART
     Dates: start: 201911
  2. DIVALPROEX SODIUM. [Suspect]
     Active Substance: DIVALPROEX SODIUM
     Indication: EPILEPSY
     Dosage: 2 CAPSULES
     Dates: start: 201605

REACTIONS (3)
  - Gait disturbance [Not Recovered/Not Resolved]
  - Weight decreased [Unknown]
  - Drug level increased [Not Recovered/Not Resolved]

NARRATIVE: CASE EVENT DATE: 202106
